FAERS Safety Report 11783696 (Version 14)
Quarter: 2019Q2

REPORT INFORMATION
  Report Type: Report from Study
  Country: BR (occurrence: BR)
  Receive Date: 20151127
  Receipt Date: 20190529
  Transmission Date: 20190711
  Serious: Yes (Other)
  Sender: FDA-Public Use
  Company Number: PHHY2015BR074158

PATIENT
  Age: 53 Year
  Sex: Female
  Weight: 60 kg

DRUGS (25)
  1. FOSTER [Concomitant]
     Active Substance: BECLOMETHASONE\FORMOTEROL
     Indication: ASTHMA
     Dosage: 1 DF, BID (6/100 MG)
     Route: 055
  2. XOLAIR [Suspect]
     Active Substance: OMALIZUMAB
     Dosage: UNK
     Route: 058
     Dates: start: 2017, end: 2017
  3. XOLAIR [Suspect]
     Active Substance: OMALIZUMAB
     Dosage: UNK
     Route: 058
     Dates: start: 20190225
  4. XOLAIR [Suspect]
     Active Substance: OMALIZUMAB
     Dosage: EVERY 15 DAYS
     Route: 058
     Dates: start: 20151118
  5. SINGULAIR [Concomitant]
     Active Substance: MONTELUKAST SODIUM
     Indication: ASTHMA
     Dosage: 2 DF, QD
     Route: 065
  6. XOLAIR [Suspect]
     Active Substance: OMALIZUMAB
     Indication: ASTHMA
     Dosage: 450 MG, BIW
     Route: 058
     Dates: start: 20150204, end: 2017
  7. XOLAIR [Suspect]
     Active Substance: OMALIZUMAB
     Dosage: EVERY 15 DAYS
     Route: 058
     Dates: start: 20151015
  8. XOLAIR [Suspect]
     Active Substance: OMALIZUMAB
     Dosage: 3 DF, UNK
     Route: 058
  9. XOLAIR [Suspect]
     Active Substance: OMALIZUMAB
     Dosage: 3 DF, BIW
     Route: 058
     Dates: end: 2017
  10. EUTHYROX [Concomitant]
     Active Substance: LEVOTHYROXINE SODIUM
     Indication: HYPERTHYROIDISM
     Dosage: 1 DF, QD
     Route: 048
  11. OXIMAX [Concomitant]
     Active Substance: MOMETASONE FUROATE
     Indication: ASTHMA
     Dosage: 400 UG, BID
     Route: 055
  12. SPIRIVA [Concomitant]
     Active Substance: TIOTROPIUM BROMIDE MONOHYDRATE
     Indication: ASTHMA
     Dosage: 1 DF, UNK
     Route: 055
  13. MOTILIUM [Concomitant]
     Active Substance: DOMPERIDONE
     Indication: GASTROOESOPHAGEAL REFLUX DISEASE
     Dosage: 3 DF, QD
     Route: 048
  14. XOLAIR [Suspect]
     Active Substance: OMALIZUMAB
     Dosage: UNK
     Route: 058
     Dates: start: 20190503
  15. XOLAIR [Suspect]
     Active Substance: OMALIZUMAB
     Dosage: 2 DF (AMPOULES), EVERY 15 DAYS
     Route: 058
  16. XOLAIR [Suspect]
     Active Substance: OMALIZUMAB
     Dosage: UNK
     Route: 058
     Dates: start: 20190225
  17. RELVAR ELLIPTA [Concomitant]
     Active Substance: FLUTICASONE FUROATE\VILANTEROL TRIFENATATE
     Indication: ASTHMA
     Dosage: 1 DF, QD
     Route: 055
  18. EUTIROX [Concomitant]
     Active Substance: LEVOTHYROXINE SODIUM
     Indication: HYPOTHYROIDISM
     Dosage: 1 DF, QD
     Route: 048
  19. OMEPRAZOL//OMEPRAZOLE [Concomitant]
     Active Substance: OMEPRAZOLE
     Indication: GASTROOESOPHAGEAL REFLUX DISEASE
     Dosage: 2 DF, QD
     Route: 048
  20. XOLAIR [Suspect]
     Active Substance: OMALIZUMAB
     Dosage: UNK
     Route: 058
     Dates: start: 20150411
  21. XOLAIR [Suspect]
     Active Substance: OMALIZUMAB
     Dosage: EVERY 15 DAYS
     Route: 058
     Dates: start: 20151104
  22. EXJADE [Suspect]
     Active Substance: DEFERASIROX
     Indication: PRODUCT USED FOR UNKNOWN INDICATION
     Route: 065
     Dates: start: 201502
  23. PREDNISONE. [Concomitant]
     Active Substance: PREDNISONE
     Indication: ASTHMA
     Dosage: 1 DF, QD
     Route: 048
  24. AEROLIN [Concomitant]
     Active Substance: ALBUTEROL
     Indication: ASTHMA
     Dosage: UNK, PRN
     Route: 055
  25. BAMIFIX [Concomitant]
     Active Substance: BAMIFYLLINE HYDROCHLORIDE
     Indication: ASTHMA
     Dosage: 2 DF, QD
     Route: 048

REACTIONS (35)
  - Malaise [Not Recovered/Not Resolved]
  - Concomitant disease aggravated [Unknown]
  - Nerve injury [Not Recovered/Not Resolved]
  - Headache [Recovering/Resolving]
  - Arthralgia [Unknown]
  - Akinesia [Recovered/Resolved]
  - Dengue fever [Recovered/Resolved]
  - Sinusitis [Unknown]
  - Dysentery [Unknown]
  - Akinesia [Recovered/Resolved]
  - Platelet count decreased [Recovered/Resolved]
  - Asthma [Recovered/Resolved]
  - Ear infection [Unknown]
  - Rhinitis [Unknown]
  - Dyspnoea [Recovering/Resolving]
  - Blood test abnormal [Unknown]
  - Fall [Unknown]
  - Asthmatic crisis [Not Recovered/Not Resolved]
  - Blood immunoglobulin E increased [Not Recovered/Not Resolved]
  - Pyrexia [Recovered/Resolved]
  - Vomiting [Recovered/Resolved]
  - Dizziness [Not Recovered/Not Resolved]
  - Asthma [Recovered/Resolved]
  - Spinal disorder [Unknown]
  - Influenza [Unknown]
  - Musculoskeletal pain [Unknown]
  - Asthenia [Recovering/Resolving]
  - Aphonia [Recovered/Resolved]
  - Diarrhoea [Recovered/Resolved]
  - Intervertebral disc protrusion [Recovered/Resolved]
  - Gait inability [Unknown]
  - Anaemia [Unknown]
  - Ear pain [Recovered/Resolved]
  - Malaise [Recovered/Resolved]
  - Joint injury [Unknown]

NARRATIVE: CASE EVENT DATE: 2015
